FAERS Safety Report 4585593-6 (Version None)
Quarter: 2005Q1

REPORT INFORMATION
  Report Type: 
  Country: None (occurrence: None)
  Receive Date: 20050214
  Receipt Date: 20041007
  Transmission Date: 20050727
  Serious: Yes (Hospitalization)
  Sender: FDA-Public Use
  Company Number: 05-096

PATIENT
  Age: 69 Year
  Sex: Female

DRUGS (7)
  1. DEXAMETHASONE [Suspect]
     Indication: MULTIPLE MYELOMA
     Dosage: 40 MG/DAY, ORAL
     Route: 048
     Dates: start: 20030317, end: 20030320
  2. GENASENSE [Suspect]
     Indication: MULTIPLE MYELOMA
     Dosage: 7 MG/KG/DAY, INTRAVENOUS
     Route: 042
     Dates: start: 20030314, end: 20030321
  3. GENASENSE [Suspect]
  4. CONJUGATED ESTROGEN [Concomitant]
  5. LISINOPRIL WITH HYDROCHLOROTHIAZIDE [Concomitant]
  6. RANITIDINE [Concomitant]
  7. TRIMETHOPRIM-SULFAMETHOXAZOLE [Concomitant]

REACTIONS (6)
  - DEHYDRATION [None]
  - DIARRHOEA [None]
  - NAUSEA [None]
  - RENAL CYST [None]
  - RENAL FAILURE [None]
  - VOMITING [None]
